FAERS Safety Report 25166328 (Version 2)
Quarter: 2025Q2

REPORT INFORMATION
  Report Type: Spontaneous
  Country: US (occurrence: US)
  Receive Date: 20250407
  Receipt Date: 20250407
  Transmission Date: 20250717
  Serious: Yes (Other)
  Sender: IPSEN
  Company Number: US-IPSEN Group, Research and Development-2025-07453

PATIENT
  Age: 27 Year
  Sex: Female

DRUGS (4)
  1. DYSPORT [Suspect]
     Active Substance: ABOBOTULINUMTOXINA
     Indication: Skin wrinkling
     Route: 065
     Dates: start: 20241111, end: 20241111
  2. DYSPORT [Suspect]
     Active Substance: ABOBOTULINUMTOXINA
     Indication: Skin wrinkling
  3. DYSPORT [Suspect]
     Active Substance: ABOBOTULINUMTOXINA
     Indication: Off label use
  4. HYALURONIC ACID [Suspect]
     Active Substance: HYALURONIC ACID
     Indication: Skin cosmetic procedure
     Route: 065
     Dates: start: 20241111, end: 20241111

REACTIONS (18)
  - Heart rate increased [Not Recovered/Not Resolved]
  - Sinusitis [Recovered/Resolved]
  - Tremor [Not Recovered/Not Resolved]
  - Dyskinesia [Not Recovered/Not Resolved]
  - Paraesthesia [Recovered/Resolved]
  - Weight decreased [Not Recovered/Not Resolved]
  - Tinnitus [Recovered/Resolved]
  - Pruritus [Recovered/Resolved with Sequelae]
  - Lip disorder [Not Recovered/Not Resolved]
  - Facial pain [Not Recovered/Not Resolved]
  - Skin irritation [Recovered/Resolved with Sequelae]
  - Cough [Recovered/Resolved]
  - Limb discomfort [Recovered/Resolved]
  - Chest discomfort [Recovered/Resolved]
  - Injection site pain [Not Recovered/Not Resolved]
  - Fatigue [Not Recovered/Not Resolved]
  - Asthenia [Not Recovered/Not Resolved]
  - Off label use [Unknown]

NARRATIVE: CASE EVENT DATE: 20240101
